FAERS Safety Report 12546880 (Version 3)
Quarter: 2016Q4

REPORT INFORMATION
  Report Type: Spontaneous
  Country: US (occurrence: US)
  Receive Date: 20160711
  Receipt Date: 20161018
  Transmission Date: 20170207
  Serious: Yes (Other)
  Sender: FDA-Public Use
  Company Number: US-TEVA-675482USA

PATIENT
  Age: 46 Year
  Sex: Female

DRUGS (1)
  1. ZECUITY [Suspect]
     Active Substance: SUMATRIPTAN SUCCINATE
     Route: 062

REACTIONS (11)
  - Rash [Recovered/Resolved]
  - Drug ineffective [Unknown]
  - Application site pain [Recovered/Resolved]
  - Application site reaction [Unknown]
  - Application site reaction [Recovered/Resolved]
  - Application site vesicles [Recovered/Resolved]
  - Application site erythema [Recovered/Resolved]
  - Application site exfoliation [Recovered/Resolved]
  - Application site burn [Recovered/Resolved]
  - Application site discolouration [Recovered/Resolved]
  - Application site pain [Recovered/Resolved]

NARRATIVE: CASE EVENT DATE: 20160216
